FAERS Safety Report 4276105-5 (Version None)
Quarter: 2004Q1

REPORT INFORMATION
  Report Type: 
  Country: None (occurrence: None)
  Receive Date: 20040121
  Receipt Date: 20030909
  Transmission Date: 20041129
  Serious: No
  Sender: FDA-Public Use
  Company Number: US-GLAXOSMITHKLINE-A0425171A

PATIENT
  Age: 41 Year
  Sex: Female

DRUGS (18)
  1. VALTREX [Suspect]
     Dosage: 1G PER DAY
     Route: 048
  2. WELLBUTRIN SR [Concomitant]
  3. CLARINEX [Concomitant]
  4. REMERON [Concomitant]
  5. VERAPAMIL [Concomitant]
  6. PREMARIN [Concomitant]
  7. LORAZEPAM [Concomitant]
  8. ZOMIG [Concomitant]
  9. INDOMETHACIN [Concomitant]
  10. MULTI-VITAMIN [Concomitant]
  11. CALCIUM SUPPLEMENT [Concomitant]
  12. ZINC SULFATE [Concomitant]
  13. PSEUDOEPHEDRINE HCL [Concomitant]
  14. ASPIRIN [Concomitant]
  15. FLEXERIL [Concomitant]
  16. LODINE [Concomitant]
  17. RHINOCORT AQUA [Concomitant]
  18. B-12 [Concomitant]

REACTIONS (2)
  - CONTUSION [None]
  - INCREASED TENDENCY TO BRUISE [None]
